FAERS Safety Report 9723675 (Version 1)
Quarter: 2013Q4

REPORT INFORMATION
  Report Type: Spontaneous
  Country: US (occurrence: US)
  Receive Date: 20131202
  Receipt Date: 20131202
  Transmission Date: 20140711
  Serious: Yes (Other)
  Sender: FDA-Public Use
  Company Number: US-PFIZER INC-2013339374

PATIENT
  Age: 60 Year
  Sex: Female

DRUGS (3)
  1. PREMARIN [Suspect]
     Indication: HORMONE REPLACEMENT THERAPY
     Dosage: UNK
     Route: 067
     Dates: start: 20121031, end: 201301
  2. PREMARIN [Suspect]
     Route: 067
  3. FEMRING [Suspect]
     Dosage: UNK

REACTIONS (3)
  - Humerus fracture [Unknown]
  - Fungal infection [Unknown]
  - Fall [Unknown]
